FAERS Safety Report 4714509-4 (Version None)
Quarter: 2005Q3

REPORT INFORMATION
  Report Type: 
  Country: None (occurrence: None)
  Receive Date: 20050714
  Receipt Date: 20050620
  Transmission Date: 20060218
  Serious: Yes (Death, Hospitalization)
  Sender: FDA-Public Use
  Company Number: 200511811JP

PATIENT
  Age: 53 Year
  Sex: Female
  Weight: 54 kg

DRUGS (5)
  1. TAXOTERE [Suspect]
     Indication: BREAST CANCER RECURRENT
     Route: 041
     Dates: start: 20050616, end: 20050616
  2. RADIOTHERAPY [Concomitant]
     Indication: BREAST CANCER RECURRENT
     Dates: start: 20050427, end: 20050501
  3. AREDIA [Concomitant]
     Indication: METASTASES TO BONE
     Dates: start: 20050404, end: 20050606
  4. DECADRON [Concomitant]
     Indication: PROPHYLAXIS
     Route: 041
     Dates: start: 20050616, end: 20050617
  5. DUROTEP [Concomitant]
     Indication: PAIN
     Route: 062
     Dates: start: 20050401, end: 20050618

REACTIONS (8)
  - ACUTE RESPIRATORY FAILURE [None]
  - BLOOD ALKALINE PHOSPHATASE INCREASED [None]
  - DRUG HYPERSENSITIVITY [None]
  - PALPITATIONS [None]
  - PANCYTOPENIA [None]
  - RENAL FAILURE ACUTE [None]
  - SHOCK [None]
  - TUMOUR LYSIS SYNDROME [None]
